FAERS Safety Report 6324224-1 (Version None)
Quarter: 2009Q3

REPORT INFORMATION
  Report Type: 
  Country: None (occurrence: None)
  Receive Date: 20090824
  Receipt Date: 20090423
  Transmission Date: 20100115
  Serious: No
  Sender: FDA-Public Use
  Company Number: US-ABBOTT-09P-163-0569808-00

PATIENT
  Sex: Female
  Weight: 135.29 kg

DRUGS (11)
  1. NIASPAN [Suspect]
     Indication: BLOOD CHOLESTEROL INCREASED
     Dates: start: 20090101
  2. PLAVIX [Concomitant]
     Indication: CORONARY ARTERIAL STENT INSERTION
  3. LIPITOR [Concomitant]
     Indication: BLOOD CHOLESTEROL INCREASED
  4. ASPIRIN [Concomitant]
     Indication: CARDIOVASCULAR EVENT PROPHYLAXIS
     Route: 048
  5. PROVENTIL-HFA [Concomitant]
     Indication: ASTHMA
  6. AVAPRO [Concomitant]
     Indication: HYPERTENSION
  7. CARDIZEM [Concomitant]
     Indication: HYPERTENSION
  8. FISH OIL [Concomitant]
     Indication: CARDIOVASCULAR EVENT PROPHYLAXIS
  9. FUROSEMIDE [Concomitant]
     Indication: FLUID RETENTION
  10. POTASSIUM CHLORIDE [Concomitant]
     Indication: ELECTROLYTE SUBSTITUTION THERAPY
  11. INSULIN [Concomitant]
     Indication: DIABETES MELLITUS

REACTIONS (3)
  - HOT FLUSH [None]
  - PRURITUS [None]
  - SKIN BURNING SENSATION [None]
